FAERS Safety Report 7519668-6 (Version None)
Quarter: 2011Q2

REPORT INFORMATION
  Report Type: 
  Country: None (occurrence: None)
  Receive Date: 20110602
  Receipt Date: 20110520
  Transmission Date: 20111010
  Serious: Yes (Hospitalization)
  Sender: FDA-Public Use
  Company Number: B0723311A

PATIENT
  Age: 35 Year
  Sex: Male

DRUGS (1)
  1. PROPAFENONE HCL [Suspect]
     Dosage: 10MG PER DAY
     Route: 065

REACTIONS (6)
  - HYPOTENSION [None]
  - SUICIDE ATTEMPT [None]
  - VENTRICULAR FIBRILLATION [None]
  - CONVULSION [None]
  - COMA [None]
  - OVERDOSE [None]
